FAERS Safety Report 5637355-6 (Version None)
Quarter: 2008Q1

REPORT INFORMATION
  Report Type: 
  Country: None (occurrence: None)
  Receive Date: 20080225
  Receipt Date: 20080214
  Transmission Date: 20080703
  Serious: Yes (Other)
  Sender: FDA-Public Use
  Company Number: US-PFIZER INC-2008014189

PATIENT
  Sex: Female

DRUGS (2)
  1. LIPITOR [Suspect]
  2. SEROQUEL [Suspect]

REACTIONS (4)
  - AMNESIA [None]
  - CONFUSIONAL STATE [None]
  - DROP ATTACKS [None]
  - NERVOUS SYSTEM DISORDER [None]
